FAERS Safety Report 17554416 (Version 1)
Quarter: 2020Q1

REPORT INFORMATION
  Report Type: Spontaneous
  Country: US (occurrence: US)
  Receive Date: 20200318
  Receipt Date: 20200318
  Transmission Date: 20200409
  Serious: No
  Sender: FDA-Public Use
  Company Number: US-ASTRAZENECA-2020SE32864

PATIENT
  Age: 26648 Day
  Sex: Female
  Weight: 132 kg

DRUGS (6)
  1. INSULIN NOVALIN 70/30 [Concomitant]
  2. BYDUREON [Suspect]
     Active Substance: EXENATIDE
     Indication: BLOOD GLUCOSE ABNORMAL
     Route: 058
     Dates: start: 202001
  3. BYDUREON [Suspect]
     Active Substance: EXENATIDE
     Indication: WEIGHT DECREASED
     Route: 058
     Dates: start: 202001
  4. GLUCOSAMINE [Concomitant]
     Active Substance: GLUCOSAMINE
  5. STEROID INJECTION [Concomitant]
     Active Substance: UNSPECIFIED INGREDIENT
  6. BYDUREON [Suspect]
     Active Substance: EXENATIDE
     Indication: APPETITE DISORDER
     Route: 058
     Dates: start: 202001

REACTIONS (6)
  - Intentional product misuse [Unknown]
  - Device issue [Unknown]
  - Wrong technique in device usage process [Unknown]
  - Nervousness [Not Recovered/Not Resolved]
  - Back pain [Recovered/Resolved]
  - Blood glucose decreased [Recovered/Resolved]

NARRATIVE: CASE EVENT DATE: 20191231
